FAERS Safety Report 7733719-5 (Version None)
Quarter: 2011Q3

REPORT INFORMATION
  Report Type: 
  Country: None (occurrence: None)
  Receive Date: 20110907
  Receipt Date: 20110901
  Transmission Date: 20111222
  Serious: Yes (Death, Other)
  Sender: FDA-Public Use
  Company Number: JP-PFIZER INC-2011201191

PATIENT
  Age: 7 Month
  Sex: Female

DRUGS (7)
  1. ETOPOSIDE [Suspect]
     Indication: ACUTE MYELOID LEUKAEMIA
     Dosage: 150 MG/M2, UNK
  2. METHOTREXATE SODIUM [Suspect]
     Indication: ACUTE MYELOID LEUKAEMIA
     Dosage: 3 MG, UNK
     Route: 037
  3. NEUPOGEN [Suspect]
     Indication: NEUTROPENIA
  4. NOVANTRONE [Suspect]
     Indication: ACUTE MYELOID LEUKAEMIA
     Dosage: 5 MG/M2, UNK
  5. CYTARABINE [Suspect]
     Indication: ACUTE MYELOID LEUKAEMIA
     Dosage: 2000 MG/M2, UNK
  6. HYDROCORTISONE SODIUM SUCCINATE [Suspect]
     Indication: ACUTE MYELOID LEUKAEMIA
     Dosage: 10 MG, UNK
  7. CYTARABINE [Suspect]
     Dosage: 6 MG, UNK

REACTIONS (10)
  - HYPERBILIRUBINAEMIA [None]
  - ACUTE RESPIRATORY DISTRESS SYNDROME [None]
  - HEPATOSPLENOMEGALY [None]
  - HISTIOCYTOSIS HAEMATOPHAGIC [None]
  - DISSEMINATED INTRAVASCULAR COAGULATION [None]
  - LYMPHADENOPATHY [None]
  - CONTINUOUS HAEMODIAFILTRATION [None]
  - FEBRILE NEUTROPENIA [None]
  - JAUNDICE [None]
  - SEPTIC SHOCK [None]
